FAERS Safety Report 5917417-6 (Version None)
Quarter: 2008Q4

REPORT INFORMATION
  Report Type: 
  Country: None (occurrence: None)
  Receive Date: 20081014
  Receipt Date: 20081009
  Transmission Date: 20090506
  Serious: Yes (Other)
  Sender: FDA-Public Use
  Company Number: B0539268A

PATIENT
  Age: 54 Year
  Sex: Female
  Weight: 72 kg

DRUGS (3)
  1. LAPATINIB [Suspect]
     Indication: BREAST CANCER METASTATIC
     Dosage: 1250MG PER DAY
     Route: 048
     Dates: start: 20080710
  2. CAPECITABINE [Suspect]
     Indication: BREAST CANCER METASTATIC
     Dosage: 3500MG PER DAY
     Route: 048
     Dates: start: 20080710
  3. EPIRUBICIN [Concomitant]

REACTIONS (3)
  - DISEASE PROGRESSION [None]
  - EJECTION FRACTION DECREASED [None]
  - ILL-DEFINED DISORDER [None]
